FAERS Safety Report 16754137 (Version 1)
Quarter: 2019Q3

REPORT INFORMATION
  Report Type: Spontaneous
  Country: US (occurrence: US)
  Receive Date: 20190829
  Receipt Date: 20190829
  Transmission Date: 20191005
  Serious: No
  Sender: FDA-Public Use
  Company Number: US-TEVA-2019-US-1099220

PATIENT
  Age: 63 Year
  Sex: Male

DRUGS (22)
  1. CARBIDOPA/LEVODOPA [Concomitant]
     Active Substance: CARBIDOPA\LEVODOPA
  2. LATUDA [Concomitant]
     Active Substance: LURASIDONE HYDROCHLORIDE
  3. AUSTEDO [Suspect]
     Active Substance: DEUTETRABENAZINE
     Indication: TARDIVE DYSKINESIA
     Dosage: NEW TITRATED PATIENT
     Dates: start: 201902
  4. AUSTEDO [Suspect]
     Active Substance: DEUTETRABENAZINE
     Dosage: 24 MILLIGRAM DAILY;
  5. TAB-E-VITE [Concomitant]
  6. AUSTEDO [Suspect]
     Active Substance: DEUTETRABENAZINE
     Dosage: 18 MILLIGRAM DAILY;
  7. AMLODIPINE [Concomitant]
     Active Substance: AMLODIPINE BESYLATE
  8. CARVEDILOL. [Concomitant]
     Active Substance: CARVEDILOL
  9. SERATE [Concomitant]
  10. SYMBICORT [Concomitant]
     Active Substance: BUDESONIDE\FORMOTEROL FUMARATE DIHYDRATE
  11. DIGOXIN. [Concomitant]
     Active Substance: DIGOXIN
  12. DILANTIN [Concomitant]
     Active Substance: PHENYTOIN
  13. VITAMIN C [Concomitant]
     Active Substance: ASCORBIC ACID
  14. LEVOCETIRIZINE [Concomitant]
     Active Substance: LEVOCETIRIZINE
  15. METFORMIN [Concomitant]
     Active Substance: METFORMIN HYDROCHLORIDE
  16. TRAZODONE [Concomitant]
     Active Substance: TRAZODONE HYDROCHLORIDE
  17. HYDROCHLOROTHIAZIDE. [Concomitant]
     Active Substance: HYDROCHLOROTHIAZIDE
  18. TAMSULOSIN [Concomitant]
     Active Substance: TAMSULOSIN
  19. KEPPRA [Concomitant]
     Active Substance: LEVETIRACETAM
  20. POTASSIUM CL MICRO [Concomitant]
  21. SIMVASTATIN. [Concomitant]
     Active Substance: SIMVASTATIN
  22. FLONASE [Concomitant]
     Active Substance: FLUTICASONE PROPIONATE

REACTIONS (1)
  - Tremor [Unknown]
